FAERS Safety Report 5781511-3 (Version None)
Quarter: 2008Q2

REPORT INFORMATION
  Report Type: 
  Country: None (occurrence: None)
  Receive Date: 20080623
  Receipt Date: 20080616
  Transmission Date: 20081010
  Serious: Yes (Hospitalization, Disabling)
  Sender: FDA-Public Use
  Company Number: JP-BAYER-200711046BYL

PATIENT
  Age: 64 Year
  Sex: Female
  Weight: 51 kg

DRUGS (7)
  1. INTERFERON BETA-1B [Suspect]
     Indication: MULTIPLE SCLEROSIS
     Dosage: TOTAL DAILY DOSE: 8 MIU  UNIT DOSE: 9.6 MIU
     Route: 058
     Dates: start: 20010904, end: 20010926
  2. INTERFERON BETA-1B [Suspect]
     Dosage: TOTAL DAILY DOSE: 4 MIU  UNIT DOSE: 9.6 MIU
     Route: 058
     Dates: start: 20010927, end: 20020617
  3. INTERFERON BETA-1B [Suspect]
     Dosage: TOTAL DAILY DOSE: 4 MIU  UNIT DOSE: 9.6 MIU
     Route: 058
     Dates: start: 20020716, end: 20030422
  4. MEDROL [Concomitant]
     Route: 048
  5. UBRETID [Concomitant]
     Route: 048
  6. TEGRETOL [Concomitant]
     Route: 048
  7. CLONAZEPAM [Concomitant]
     Route: 048

REACTIONS (2)
  - OPTIC NEURITIS [None]
  - PYRAMIDAL TRACT SYNDROME [None]
